FAERS Safety Report 9330948 (Version 2)
Quarter: 2013Q2

REPORT INFORMATION
  Report Type: Spontaneous
  Country: US (occurrence: None)
  Receive Date: 20130531
  Receipt Date: 20130606
  Transmission Date: 20140414
  Serious: Yes (Death)
  Sender: FDA-Public Use
  Company Number: 2013-0901

PATIENT
  Age: 75 Year
  Sex: Male

DRUGS (13)
  1. KYPROLIS [Suspect]
     Indication: PLASMA CELL MYELOMA
     Route: 042
     Dates: start: 20130328
  2. PRINIVIL [Concomitant]
  3. ACYCLOVIR (ACICLOVIR) (ACICLOVIR) [Concomitant]
  4. LEXAPRO (ESCITALOPRAM OXALATE) (ESCITALOPRAM OXALATE) [Concomitant]
  5. TRILEPTAL (OXCARBAZEPINE) (OXCARBAZEPINE) [Concomitant]
  6. KLONOPIN [Concomitant]
  7. ZOLPIDEM (ZOLPIDEM) (ZOLPIDEM) [Concomitant]
  8. MELPHALAN (MELPHALAN) (MELPHALAN) [Concomitant]
  9. PREDNISONE (PREDNISONE) (PREDNISONE) [Concomitant]
  10. METERED DOSE INHALERS [Concomitant]
  11. RHINOCORT (BECLOMETASONE DIPROPIONATE) [Concomitant]
  12. ZYRTEC (CETIRIZINE HYDROCHLORIDE) [Concomitant]
  13. LISINOPRIL (LISINOPRIL) [Concomitant]

REACTIONS (6)
  - Asthenia [None]
  - Malaise [None]
  - Fall [None]
  - Pallor [None]
  - Myocardial infarction [None]
  - Acute myocardial infarction [None]
